FAERS Safety Report 23292881 (Version 1)
Quarter: 2023Q4

REPORT INFORMATION
  Report Type: Spontaneous
  Country: US (occurrence: None)
  Receive Date: 20231212
  Receipt Date: 20231212
  Transmission Date: 20240109
  Serious: Yes (Other)
  Sender: FDA-Public Use
  Company Number: None

PATIENT
  Sex: Female
  Weight: 79.83 kg

DRUGS (17)
  1. MOUNJARO [Suspect]
     Active Substance: TIRZEPATIDE
     Indication: Diabetes mellitus
     Dosage: FREQUENCY : WEEKLY;?
     Route: 058
     Dates: start: 20230706
  2. OXYGEN [Concomitant]
     Active Substance: OXYGEN
  3. DEVICE [Concomitant]
     Active Substance: DEVICE
  4. VITAMIN B12 [Concomitant]
     Active Substance: CYANOCOBALAMIN
  5. LOSARTAN [Concomitant]
     Active Substance: LOSARTAN
  6. FLECAINIDE [Concomitant]
     Active Substance: FLECAINIDE
  7. MEMANTINE [Concomitant]
     Active Substance: MEMANTINE
  8. PANTOPRAZOLE [Concomitant]
     Active Substance: PANTOPRAZOLE
  9. VASCEPA [Concomitant]
     Active Substance: ICOSAPENT ETHYL
  10. PRAVASTATIN [Concomitant]
     Active Substance: PRAVASTATIN
  11. DONEPEZIL HYDROCHLORIDE [Concomitant]
     Active Substance: DONEPEZIL HYDROCHLORIDE
  12. VITAMIN D2 [Concomitant]
     Active Substance: ERGOCALCIFEROL
  13. FERROUS GLUCONATE [Concomitant]
     Active Substance: FERROUS GLUCONATE
  14. METHOCARBAMOL [Concomitant]
     Active Substance: METHOCARBAMOL
  15. LEVOCETIRIZINE [Concomitant]
     Active Substance: LEVOCETIRIZINE
  16. Breo Nasal Spray [Concomitant]
  17. IBUPROFEN [Concomitant]
     Active Substance: IBUPROFEN

REACTIONS (2)
  - Rash pruritic [None]
  - Injection site swelling [None]
